FAERS Safety Report 6956941-4 (Version None)
Quarter: 2010Q3

REPORT INFORMATION
  Report Type: 
  Country: None (occurrence: None)
  Receive Date: 20100826
  Receipt Date: 20091007
  Transmission Date: 20110219
  Serious: Yes (Life-Threatening, Hospitalization)
  Sender: FDA-Public Use
  Company Number: 1-20393788

PATIENT
  Age: 13 Year
  Sex: Female

DRUGS (1)
  1. BACTRIM [Suspect]
     Indication: STAPHYLOCOCCAL INFECTION
     Dosage: ORAL
     Route: 048
     Dates: start: 20080622, end: 20090628

REACTIONS (23)
  - COAGULOPATHY [None]
  - DEHYDRATION [None]
  - DEPRESSION [None]
  - DYSPHONIA [None]
  - FLASHBACK [None]
  - FLUID INTAKE REDUCED [None]
  - FLUID OVERLOAD [None]
  - LIVER DISORDER [None]
  - LUNG DISORDER [None]
  - MULTI-ORGAN FAILURE [None]
  - NIGHTMARE [None]
  - PAIN [None]
  - PNEUMONIA [None]
  - PULMONARY OEDEMA [None]
  - RENAL IMPAIRMENT [None]
  - SEPTIC SHOCK [None]
  - SOCIAL AVOIDANT BEHAVIOUR [None]
  - STAPHYLOCOCCAL PHARYNGITIS [None]
  - STEVENS-JOHNSON SYNDROME [None]
  - TOXIC EPIDERMAL NECROLYSIS [None]
  - URINARY TRACT INFECTION [None]
  - VISUAL IMPAIRMENT [None]
  - WEIGHT DECREASED [None]
